FAERS Safety Report 4661983-8 (Version None)
Quarter: 2005Q2

REPORT INFORMATION
  Report Type: 
  Country: None (occurrence: None)
  Receive Date: 20050512
  Receipt Date: 20050430
  Transmission Date: 20051028
  Serious: Yes (Other)
  Sender: FDA-Public Use
  Company Number: 2005056882

PATIENT
  Age: 65 Year
  Sex: Female
  Weight: 88.4514 kg

DRUGS (9)
  1. NEURONTIN [Suspect]
     Indication: NEUROPATHIC PAIN
     Dosage: 300 MG (300 MG, 1 IN 1 D), ORAL
     Route: 048
  2. MORPHINE [Concomitant]
  3. MORPHINE SULFATE [Concomitant]
  4. PRINZIDE [Concomitant]
  5. METHYLPHENIDATE HCL [Concomitant]
  6. METFORMIN HCL [Concomitant]
  7. LEVOTHYROXINE SODIUM [Concomitant]
  8. ESCITALOPRAM OXALATE [Concomitant]
  9. CONJUGATED ESTROGENS [Concomitant]

REACTIONS (8)
  - BACK INJURY [None]
  - BLOOD GLUCOSE INCREASED [None]
  - BLOOD PRESSURE INCREASED [None]
  - DRUG INEFFECTIVE [None]
  - JOINT INJURY [None]
  - NECK INJURY [None]
  - PARAESTHESIA [None]
  - ROAD TRAFFIC ACCIDENT [None]
